FAERS Safety Report 19397150 (Version 1)
Quarter: 2021Q2

REPORT INFORMATION
  Report Type: Other
  Country: US (occurrence: US)
  Receive Date: 20210609
  Receipt Date: 20210609
  Transmission Date: 20210717
  Serious: Yes (Death)
  Sender: FDA-Public Use
  Company Number: US-MISSION PHARMACAL COMPANY-2112541

PATIENT
  Age: 69 Year
  Sex: Male

DRUGS (1)
  1. THIOLA EC [Suspect]
     Active Substance: TIOPRONIN
     Indication: NEOPLASM MALIGNANT
     Route: 048
     Dates: start: 20191004

REACTIONS (1)
  - Neoplasm malignant [Fatal]
